FAERS Safety Report 16198136 (Version 2)
Quarter: 2019Q2

REPORT INFORMATION
  Report Type: Spontaneous
  Country: US (occurrence: US)
  Receive Date: 20190415
  Receipt Date: 20190603
  Transmission Date: 20190711
  Serious: No
  Sender: FDA-Public Use
  Company Number: US-009507513-1903USA011205

PATIENT
  Sex: Female
  Weight: 77.11 kg

DRUGS (8)
  1. LYRICA [Concomitant]
     Active Substance: PREGABALIN
     Indication: NEUROPATHY PERIPHERAL
     Dosage: 100 MILLIGRAM, BID (ONE IN THE MORNING AND ONE AT NIGHT)
     Route: 048
  2. SINGULAIR [Suspect]
     Active Substance: MONTELUKAST SODIUM
     Dosage: 10 MILLIGRAM, QD (ONCE A DAY)
     Route: 048
     Dates: start: 201711
  3. METOPROLOL. [Concomitant]
     Active Substance: METOPROLOL
     Indication: HEART RATE IRREGULAR
     Dosage: 25 MILLIGRAM, BID (TWICE A DAY)
     Dates: start: 201501
  4. XANAX [Concomitant]
     Active Substance: ALPRAZOLAM
     Indication: NEUROPATHY PERIPHERAL
     Dosage: 1 MILLIGRAM, PRN (AT BEDTIME AS NEEDED)
     Dates: start: 2016
  5. SINGULAIR [Suspect]
     Active Substance: MONTELUKAST SODIUM
     Indication: HYPERSENSITIVITY
     Dosage: AS NEEDED BASIS
     Route: 048
     Dates: end: 201711
  6. ASPIRIN. [Concomitant]
     Active Substance: ASPIRIN
     Indication: HEART RATE IRREGULAR
     Dosage: 81 MILLIGRAM, QD (ONCE A DAY)
     Route: 048
     Dates: start: 2015
  7. AMBIEN [Concomitant]
     Active Substance: ZOLPIDEM TARTRATE
     Indication: INSOMNIA
     Dosage: 10 MILLIGRAM, PRN (AS NEEDED AT NIGHT)
     Dates: start: 2015
  8. ATORVASTATIN [Concomitant]
     Active Substance: ATORVASTATIN
     Indication: BLOOD CHOLESTEROL
     Dosage: 20 MILLIGRAM, QD (ONCE A DAY)
     Route: 048

REACTIONS (2)
  - Hypersensitivity [Unknown]
  - Ear discomfort [Unknown]
